FAERS Safety Report 5253836-1 (Version None)
Quarter: 2007Q1

REPORT INFORMATION
  Report Type: 
  Country: None (occurrence: None)
  Receive Date: 20070227
  Receipt Date: 20070215
  Transmission Date: 20070707
  Serious: Yes (Death, Hospitalization)
  Sender: FDA-Public Use
  Company Number: JPI-P-000622

PATIENT
  Age: 6 Decade
  Sex: Female

DRUGS (18)
  1. XYREM [Suspect]
     Indication: INSOMNIA
     Dosage: 6 GM (6 GM, 1 IN 1 D), ORAL
     Route: 048
  2. NEXIUM [Concomitant]
  3. CELEXA [Concomitant]
  4. CALCIUM (CALCIUM) [Concomitant]
  5. KLONOPIN [Concomitant]
  6. MAGNESIUM (MAGNESIUM) [Concomitant]
  7. REMERON [Concomitant]
  8. GLUCOSE CHONDROITIN (JOINT FOOD) [Concomitant]
  9. EVISTA [Concomitant]
  10. SYNTHROID [Concomitant]
  11. MARINOL [Concomitant]
  12. FOSAMAX [Concomitant]
  13. NIFEREX (IRON) [Concomitant]
  14. ABILIFY [Concomitant]
  15. ZANTAC [Concomitant]
  16. ACTOS [Concomitant]
  17. TYLENOL [Concomitant]
  18. DEPAKOTE [Concomitant]

REACTIONS (2)
  - RENAL FAILURE [None]
  - TREATMENT NONCOMPLIANCE [None]
